FAERS Safety Report 5704268-0 (Version None)
Quarter: 2008Q2

REPORT INFORMATION
  Report Type: 
  Country: None (occurrence: None)
  Receive Date: 20080414
  Receipt Date: 20080404
  Transmission Date: 20081010
  Serious: Yes (Hospitalization)
  Sender: FDA-Public Use
  Company Number: GB-AVENTIS-200813095GDDC

PATIENT
  Sex: Female
  Weight: 132 kg

DRUGS (9)
  1. RIFAMPICIN [Suspect]
     Indication: SKIN DISORDER
     Route: 048
     Dates: end: 20080301
  2. SEROQUEL [Suspect]
     Route: 048
  3. SEROQUEL [Suspect]
     Indication: SCHIZOPHRENIA
     Route: 048
  4. CLINDAMYCIN HCL [Suspect]
     Indication: SKIN DISORDER
     Route: 048
     Dates: end: 20080301
  5. FLUOXETINE [Concomitant]
     Indication: DEPRESSION
     Route: 048
  6. HALOPERIDOL [Concomitant]
     Indication: MANIA
     Route: 048
  7. ORPHENADRINE CITRATE [Concomitant]
     Route: 048
  8. PROZAC [Concomitant]
  9. SENNA [Concomitant]

REACTIONS (2)
  - DRUG INTERACTION [None]
  - MENTAL IMPAIRMENT [None]
